FAERS Safety Report 8171391-3 (Version None)
Quarter: 2012Q1

REPORT INFORMATION
  Report Type: 
  Country: None (occurrence: None)
  Receive Date: 20120104
  Receipt Date: 20111202
  Transmission Date: 20120608
  Serious: No
  Sender: FDA-Public Use
  Company Number: 2011HGS-002900

PATIENT
  Sex: Female
  Weight: 48.9885 kg

DRUGS (11)
  1. FOLIC ACID [Concomitant]
  2. SYNTHROID (LEVOTHYROXINE SODIUM)(LEVOTHYROXINE SODIUM [Concomitant]
  3. VITAMIN D(ERGOCALCIFEROL)(ERGOCALCIFEROL) [Concomitant]
  4. SYMBICORT(BUDESONIDE W/FORMOTEROL FUMARATE)(FORMOTEROL FUMARATE, BUDES [Concomitant]
  5. BENLYSTA [Suspect]
     Dosage: 1 IN 28 D, INTRAVENOUS DRIP
     Route: 041
  6. IG GAMMAGARDA(IMMUNOGLOBULIN HUMAN NORMAL)(IMMUNOGLOBULIN HUMAN NORMAL [Concomitant]
  7. PROTONIX(PANTOPRAZOLE SODIUM) (PANTOPRAZOLE SODIUM) [Concomitant]
  8. VITAMIN A(RETINOL)(RETINOL) [Concomitant]
  9. RESTASIS (CICLOSPORIN) (CICLOSPORIN) [Concomitant]
  10. ALBUTEROL ( SALBUTAMOL) ( SALBUTAMOL ) [Concomitant]
  11. SALAGEN(PILOCARPINE HYDROCHLORIDE)(PILOCARPINE HYDROCHLORIDE) [Concomitant]

REACTIONS (4)
  - BASAL CELL CARCINOMA [None]
  - NAUSEA [None]
  - EAR INFECTION [None]
  - RASH [None]
